FAERS Safety Report 7456374-0 (Version None)
Quarter: 2011Q2

REPORT INFORMATION
  Report Type: 
  Country: None (occurrence: None)
  Receive Date: 20110503
  Receipt Date: 20110420
  Transmission Date: 20111010
  Serious: Yes (Hospitalization, Other)
  Sender: FDA-Public Use
  Company Number: US-ELI_LILLY_AND_COMPANY-US200906003466

PATIENT
  Sex: Female

DRUGS (11)
  1. FORTEO [Suspect]
     Dosage: 20 UG, QD
     Dates: start: 20100601
  2. HUMALOG [Concomitant]
  3. VITAMINS [Concomitant]
  4. VITAMIN D [Concomitant]
  5. FORTEO [Suspect]
     Indication: OSTEOPOROSIS
     Dosage: 20 UG, QD
     Dates: start: 20090420, end: 20100401
  6. AMLODIPINE [Concomitant]
  7. LANTUS [Concomitant]
  8. ENBREL [Concomitant]
  9. FISH OIL [Concomitant]
  10. VITAMIN B [Concomitant]
  11. CALCIUM [Concomitant]

REACTIONS (6)
  - PARAESTHESIA [None]
  - RENAL IMPAIRMENT [None]
  - ASTHENIA [None]
  - DYSGEUSIA [None]
  - CEREBROVASCULAR ACCIDENT [None]
  - HYPOAESTHESIA [None]
